FAERS Safety Report 23082221 (Version 4)
Quarter: 2023Q4

REPORT INFORMATION
  Report Type: Report from Study
  Country: JP (occurrence: JP)
  Receive Date: 20231019
  Receipt Date: 20231129
  Transmission Date: 20240110
  Serious: Yes (Hospitalization)
  Sender: FDA-Public Use
  Company Number: JP-TAIHOP-2023-008651

PATIENT
  Age: 54 Year
  Sex: Male
  Weight: 77.4 kg

DRUGS (10)
  1. FUTIBATINIB [Suspect]
     Active Substance: FUTIBATINIB
     Indication: Oesophageal carcinoma
     Route: 048
     Dates: start: 20230912
  2. ZIMBERELIMAB [Suspect]
     Active Substance: ZIMBERELIMAB
     Indication: Oesophageal carcinoma
     Dosage: 360 MG/12 ML?DAILY DOSE: 360 MILLIGRAM(S)
     Route: 042
     Dates: start: 20230912, end: 20231024
  3. CISPLATIN [Suspect]
     Active Substance: CISPLATIN
     Indication: Oesophageal carcinoma
     Dosage: DAILY DOSE: 162 MILLIGRAM(S)
     Route: 042
     Dates: start: 20230912, end: 20231024
  4. FLUOROURACIL [Suspect]
     Active Substance: FLUOROURACIL
     Indication: Oesophageal carcinoma
     Dosage: ON 5 CONSECUTIVE DAYS.?DAILY DOSE: 1624 MILLIGRAM(S)
     Route: 042
     Dates: start: 20230912, end: 20231029
  5. VONOPRAZAN FUMARATE [Concomitant]
     Active Substance: VONOPRAZAN FUMARATE
     Indication: Oesophagitis
     Dosage: 20MG/ IMMEDIATELY AFTER MEAL
     Route: 048
     Dates: start: 202308
  6. LANTHANUM CARBONATE [Concomitant]
     Active Substance: LANTHANUM CARBONATE
     Indication: Hyperphosphataemia
     Dosage: 250MG AFTER EVERY MEAL
     Route: 048
     Dates: start: 20230916
  7. DIETARY SUPPLEMENT\PROBIOTICS [Concomitant]
     Active Substance: DIETARY SUPPLEMENT\PROBIOTICS NOS
     Indication: Prophylaxis against diarrhoea
     Dosage: 1 TABLET AFTER EVERY MEAL
     Route: 048
     Dates: start: 20231003
  8. MIYA-BM [Concomitant]
     Active Substance: CLOSTRIDIUM BUTYRICUM SPORES STRAIN M-55
     Indication: Prophylaxis against diarrhoea
     Dosage: 3G BEFORE EVERY MEAL
     Route: 048
     Dates: start: 20230903
  9. CALCIUM CHLORIDE\POTASSIUM CHLORIDE\SODIUM CHLORIDE\SODIUM LACTATE\SOR [Concomitant]
     Active Substance: CALCIUM CHLORIDE\POTASSIUM CHLORIDE\SODIUM CHLORIDE\SODIUM LACTATE\SORBITOL
     Indication: Electrolyte imbalance
     Route: 042
     Dates: start: 20231007, end: 20231031
  10. AMINO ACIDS\DEXTROSE\ELECTROLYTES NOS\VITAMINS [Concomitant]
     Active Substance: AMINO ACIDS\DEXTROSE\ELECTROLYTES NOS\VITAMINS
     Indication: Electrolyte imbalance
     Route: 042
     Dates: start: 20231008, end: 20231101

REACTIONS (1)
  - Pulmonary thrombosis [Recovering/Resolving]

NARRATIVE: CASE EVENT DATE: 20231011
